FAERS Safety Report 13257239 (Version 1)
Quarter: 2017Q1

REPORT INFORMATION
  Report Type: Report from Study
  Country: CZ (occurrence: CZ)
  Receive Date: 20170221
  Receipt Date: 20170221
  Transmission Date: 20170428
  Serious: Yes (Hospitalization, Other)
  Sender: FDA-Public Use
  Company Number: CZ-CELGENEUS-CZE-2017023375

PATIENT
  Age: 61 Year
  Sex: Male

DRUGS (2)
  1. MELPHALAN [Concomitant]
     Active Substance: MELPHALAN
     Indication: PRODUCT USED FOR UNKNOWN INDICATION
     Route: 065
  2. POMALIDOMIDE [Suspect]
     Active Substance: POMALIDOMIDE
     Indication: PLASMA CELL MYELOMA
     Route: 048
     Dates: start: 20151101

REACTIONS (13)
  - Nasal cavity cancer [Unknown]
  - Dysphagia [Unknown]
  - Alanine aminotransferase increased [Unknown]
  - Neuropathy peripheral [Unknown]
  - Thrombocytopenia [Unknown]
  - Osteonecrosis [Unknown]
  - Anaemia [Unknown]
  - Infection [Unknown]
  - Gingivitis [Unknown]
  - Circulatory collapse [Unknown]
  - Gamma-glutamyltransferase increased [Unknown]
  - Insomnia [Unknown]
  - Neutropenia [Unknown]
